FAERS Safety Report 6536927-4 (Version None)
Quarter: 2010Q1

REPORT INFORMATION
  Report Type: 
  Country: None (occurrence: None)
  Receive Date: 20100113
  Receipt Date: 20100104
  Transmission Date: 20100710
  Serious: Yes (Death, Other)
  Sender: FDA-Public Use
  Company Number: US-GENENTECH-296711

PATIENT
  Age: 66 Year
  Sex: Male

DRUGS (5)
  1. ACTIVASE [Suspect]
     Indication: MYOCARDIAL INFARCTION
     Dosage: 100 MG, UNK
     Route: 042
  2. ACETYLSALICYLIC ACID [Suspect]
     Indication: MYOCARDIAL INFARCTION
     Dosage: 500 MG, UNK
     Route: 042
  3. UNFRACTIONATED HEPARIN [Suspect]
     Indication: MYOCARDIAL INFARCTION
     Dosage: 5000 U, UNK
     Route: 042
  4. AMOXICILLIN AND CLAVULANATE POTASSIUM [Concomitant]
     Indication: DRUG USE FOR UNKNOWN INDICATION
     Dosage: 6 G, TID
     Route: 042
  5. PROPOFOL [Concomitant]
     Indication: SEDATION
     Dosage: 100 UNK, UNK
     Route: 065

REACTIONS (3)
  - EMBOLISM [None]
  - ISCHAEMIC STROKE [None]
  - SHOCK [None]
